FAERS Safety Report 14556825 (Version 2)
Quarter: 2018Q1

REPORT INFORMATION
  Report Type: Spontaneous
  Country: US (occurrence: US)
  Receive Date: 20180221
  Receipt Date: 20180226
  Transmission Date: 20180509
  Serious: No
  Sender: FDA-Public Use
  Company Number: US-PFIZER INC-2017483523

PATIENT
  Age: 15 Year
  Sex: Female
  Weight: 44 kg

DRUGS (3)
  1. GENOTROPIN [Suspect]
     Active Substance: SOMATROPIN
     Indication: BODY HEIGHT BELOW NORMAL
     Dosage: UNK
     Dates: start: 20150530
  2. GENOTROPIN [Suspect]
     Active Substance: SOMATROPIN
     Dosage: 1.4 MG, ALTERNATE DAY
  3. GENOTROPIN [Suspect]
     Active Substance: SOMATROPIN
     Indication: GROWTH RETARDATION
     Dosage: 1.2 MG, ALTERNATE DAY
     Route: 058

REACTIONS (3)
  - Drug dose omission [Unknown]
  - Migraine [Unknown]
  - Device issue [Unknown]

NARRATIVE: CASE EVENT DATE: 201710
